FAERS Safety Report 24553745 (Version 1)
Quarter: 2024Q4

REPORT INFORMATION
  Report Type: Report from Study
  Country: US (occurrence: US)
  Receive Date: 20241028
  Receipt Date: 20241028
  Transmission Date: 20250115
  Serious: No
  Sender: ROCHE
  Company Number: US-ROCHE-10000011804

PATIENT
  Age: 59 Year
  Sex: Male

DRUGS (2)
  1. NUTROPIN AQ [Suspect]
     Active Substance: SOMATROPIN
     Indication: Product used for unknown indication
     Dosage: 20MG/2ML
     Route: 065
     Dates: start: 200411
  2. NUTROPIN AQ [Suspect]
     Active Substance: SOMATROPIN
     Dosage: 10MG/20ML
     Route: 065
     Dates: start: 202404

REACTIONS (2)
  - Intentional product misuse [Unknown]
  - No adverse event [Unknown]

NARRATIVE: CASE EVENT DATE: 20240404
